FAERS Safety Report 4520131-5 (Version None)
Quarter: 2004Q4

REPORT INFORMATION
  Report Type: 
  Country: None (occurrence: None)
  Receive Date: 20041029
  Receipt Date: 20040628
  Transmission Date: 20050328
  Serious: No
  Sender: FDA-Public Use
  Company Number: WAES 0406USA02647

PATIENT
  Sex: Female

DRUGS (2)
  1. EMEND [Suspect]
     Dosage: PO
     Route: 048
  2. ANTINEOPLASTIC (UNSPECIFIED) [Concomitant]

REACTIONS (1)
  - BRADYCARDIA [None]
